FAERS Safety Report 13312526 (Version 1)
Quarter: 2017Q1

REPORT INFORMATION
  Report Type: Spontaneous
  Country: ES (occurrence: ES)
  Receive Date: 20170309
  Receipt Date: 20170309
  Transmission Date: 20170428
  Serious: Yes (Other)
  Sender: FDA-Public Use
  Company Number: ES-BAYER-2016-245347

PATIENT
  Age: 77 Year
  Sex: Male

DRUGS (12)
  1. RADIUM-223 DICHLORIDE [Suspect]
     Active Substance: RADIUM RA-223 DICHLORIDE
     Indication: PROSTATE CANCER METASTATIC
     Dosage: UNK
     Route: 042
  2. RADIUM-223 DICHLORIDE [Suspect]
     Active Substance: RADIUM RA-223 DICHLORIDE
     Indication: PROSTATE CANCER METASTATIC
     Dosage: UNK
     Route: 042
  3. CALCIUM [CALCIUM] [Concomitant]
     Active Substance: CALCIUM
  4. LEUPRORELIN [Concomitant]
     Active Substance: LEUPROLIDE ACETATE
  5. RADIUM-223 DICHLORIDE [Suspect]
     Active Substance: RADIUM RA-223 DICHLORIDE
     Indication: PROSTATE CANCER METASTATIC
     Dosage: UNK
     Route: 042
     Dates: start: 20130305, end: 20130305
  6. LOSARTAN. [Concomitant]
     Active Substance: LOSARTAN
     Indication: HYPERTENSION
  7. RADIUM-223 DICHLORIDE [Suspect]
     Active Substance: RADIUM RA-223 DICHLORIDE
     Indication: PROSTATE CANCER METASTATIC
     Dosage: UNK
     Route: 042
     Dates: start: 201304, end: 201304
  8. SIMVASTATIN. [Concomitant]
     Active Substance: SIMVASTATIN
     Indication: HYPERCHOLESTEROLAEMIA
     Dosage: UNK
  9. ZOLEDRONATE [Concomitant]
     Active Substance: ZOLEDRONIC ACID
     Dosage: UNK
  10. RADIUM-223 DICHLORIDE [Suspect]
     Active Substance: RADIUM RA-223 DICHLORIDE
     Indication: PROSTATE CANCER METASTATIC
     Dosage: UNK
     Route: 042
     Dates: start: 20130430, end: 20130430
  11. RADIUM-223 DICHLORIDE [Suspect]
     Active Substance: RADIUM RA-223 DICHLORIDE
     Indication: PROSTATE CANCER METASTATIC
     Dosage: UNK
     Route: 042
     Dates: start: 20130730, end: 20130730
  12. VITAMIN D [Concomitant]
     Active Substance: CHOLECALCIFEROL

REACTIONS (5)
  - Prostate cancer stage IV [Unknown]
  - Metastases to bone [Unknown]
  - Prostatic specific antigen increased [Unknown]
  - Anaemia [Recovered/Resolved]
  - Diarrhoea [Recovered/Resolved]

NARRATIVE: CASE EVENT DATE: 201304
